FAERS Safety Report 10925702 (Version 1)
Quarter: 2015Q1

REPORT INFORMATION
  Report Type: Spontaneous
  Country: US (occurrence: None)
  Receive Date: 20150316
  Receipt Date: 20150316
  Transmission Date: 20150721
  Serious: Yes (Hospitalization)
  Sender: FDA-Public Use
  Company Number: None

PATIENT
  Age: 39 Year
  Sex: Female
  Weight: 112 kg

DRUGS (1)
  1. CISPLATIN. [Suspect]
     Active Substance: CISPLATIN
     Dates: end: 20150217

REACTIONS (6)
  - Vomiting [None]
  - Nausea [None]
  - Hypophagia [None]
  - Device related infection [None]
  - Pyrexia [None]
  - Blood culture positive [None]

NARRATIVE: CASE EVENT DATE: 20150303
